FAERS Safety Report 4513666-2 (Version None)
Quarter: 2004Q4

REPORT INFORMATION
  Report Type: 
  Country: None (occurrence: None)
  Receive Date: 20041130
  Receipt Date: 20040823
  Transmission Date: 20050328
  Serious: No
  Sender: FDA-Public Use
  Company Number: US-GLAXOSMITHKLINE-A0523038A

PATIENT
  Age: 70 Year
  Sex: Female

DRUGS (7)
  1. WELLBUTRIN XL [Suspect]
     Indication: FIBROMYALGIA
     Dosage: 150MG PER DAY
     Route: 048
     Dates: start: 20040730
  2. TOPROL-XL [Concomitant]
  3. LEVOTHROID [Concomitant]
  4. BUSPAR [Concomitant]
  5. HYZAAR [Concomitant]
  6. CELEBREX [Concomitant]
  7. QUESTRAN [Concomitant]

REACTIONS (4)
  - ALOPECIA [None]
  - EYELID OEDEMA [None]
  - THROAT IRRITATION [None]
  - URTICARIA [None]
